FAERS Safety Report 5606775-8 (Version None)
Quarter: 2008Q1

REPORT INFORMATION
  Report Type: 
  Country: None (occurrence: None)
  Receive Date: 20080129
  Receipt Date: 20080123
  Transmission Date: 20080703
  Serious: Yes (Hospitalization, Other)
  Sender: FDA-Public Use
  Company Number: US-PFIZER INC-2007025632

PATIENT
  Sex: Female
  Weight: 66.2 kg

DRUGS (1)
  1. CELEBREX [Suspect]
     Indication: RHEUMATOID ARTHRITIS
     Dates: start: 19990503, end: 20020518

REACTIONS (1)
  - MYOCARDIAL INFARCTION [None]
